FAERS Safety Report 7090424-9 (Version None)
Quarter: 2010Q4

REPORT INFORMATION
  Report Type: 
  Country: None (occurrence: None)
  Receive Date: 20101012
  Receipt Date: 20100908
  Transmission Date: 20110411
  Serious: No
  Sender: FDA-Public Use
  Company Number: US-001288

PATIENT
  Sex: Male
  Weight: 104.9 kg

DRUGS (5)
  1. KUVAN [Suspect]
     Indication: PHENYLKETONURIA
     Dosage: (1700 MG QD ORAL)
     Route: 048
     Dates: start: 20080101
  2. ALBUTEROL [Concomitant]
  3. INEXUM /01479302/ [Concomitant]
  4. SINGULAIR [Concomitant]
  5. ADVAIR [Concomitant]

REACTIONS (1)
  - ASPARTATE AMINOTRANSFERASE INCREASED [None]
